FAERS Safety Report 10063646 (Version 2)
Quarter: 2014Q2

REPORT INFORMATION
  Report Type: Spontaneous
  Country: US (occurrence: US)
  Receive Date: 20140407
  Receipt Date: 20140407
  Transmission Date: 20141212
  Serious: Yes (Death)
  Sender: FDA-Public Use
  Company Number: US-RB-065459-14

PATIENT
  Age: 37 Year
  Sex: Male

DRUGS (1)
  1. SUBOXONE FILM [Suspect]
     Indication: DRUG DEPENDENCE
     Dosage: SUBOXONE FILM; TAKING 8 MG DAILY UNTIL 11-NOV-2013, FURTHER DOSING DETAILS UNKNOWN
     Route: 065

REACTIONS (1)
  - Completed suicide [Fatal]
